FAERS Safety Report 8953416 (Version 1)
Quarter: 2012Q4

REPORT INFORMATION
  Report Type: 
  Country: US (occurrence: US)
  Receive Date: 20121206
  Receipt Date: 20121206
  Transmission Date: 20130627
  Serious: Yes (Other)
  Sender: FDA-Public Use
  Company Number: US-ROCHE-788620

PATIENT
  Age: 16 Year
  Sex: Male
  Weight: 81.72 kg

DRUGS (5)
  1. ACCUTANE [Suspect]
     Indication: ACNE
     Route: 065
  2. ACCUTANE [Suspect]
     Route: 065
     Dates: start: 199401, end: 199408
  3. ACCUTANE [Suspect]
     Route: 065
  4. TETRACYCLINE [Concomitant]
     Indication: ACNE
  5. CLINDAMYCIN [Concomitant]
     Indication: ACNE

REACTIONS (11)
  - Emotional distress [Not Recovered/Not Resolved]
  - Colitis ulcerative [Unknown]
  - Diverticulitis [Unknown]
  - Blood triglycerides increased [Unknown]
  - Tendonitis [Unknown]
  - Blood alkaline phosphatase increased [Unknown]
  - Chapped lips [Unknown]
  - Dry skin [Unknown]
  - Sinusitis [Unknown]
  - Epistaxis [Unknown]
  - Inflammatory bowel disease [Unknown]
